FAERS Safety Report 7869350-0 (Version None)
Quarter: 2011Q4

REPORT INFORMATION
  Report Type: 
  Country: None (occurrence: None)
  Receive Date: 20111021
  Receipt Date: 20111011
  Transmission Date: 20120403
  Serious: Yes (Other)
  Sender: FDA-Public Use
  Company Number: 2011SP047757

PATIENT
  Age: 33 Year
  Sex: Female

DRUGS (12)
  1. SAPHRIS [Suspect]
     Indication: SCHIZOAFFECTIVE DISORDER
     Dosage: 5;10 MG, BID
     Dates: start: 20110531, end: 20110607
  2. SAPHRIS [Suspect]
     Indication: SCHIZOAFFECTIVE DISORDER
     Dosage: 5;10 MG, BID
     Dates: start: 20110601, end: 20111003
  3. TOPROL-XL [Concomitant]
  4. MULTIPLE VITAMIN [Concomitant]
  5. RISPERDAL CONSTA [Concomitant]
  6. LEXAPRO [Concomitant]
  7. COGENTIN [Concomitant]
  8. ATIVAN [Concomitant]
  9. FENOFIBRATE [Concomitant]
  10. LAMICTAL [Concomitant]
  11. HYDRODIURIL [Concomitant]
  12. LOVAZA [Concomitant]

REACTIONS (1)
  - OESOPHAGEAL STENOSIS [None]
